FAERS Safety Report 23982718 (Version 2)
Quarter: 2024Q2

REPORT INFORMATION
  Report Type: Spontaneous
  Country: BR (occurrence: BR)
  Receive Date: 20240617
  Receipt Date: 20240627
  Transmission Date: 20240715
  Serious: Yes (Hospitalization, Other)
  Sender: FDA-Public Use
  Company Number: BR-GILEAD-2024-0676196

PATIENT
  Age: 40 Year
  Sex: Female

DRUGS (1)
  1. TRODELVY [Suspect]
     Active Substance: SACITUZUMAB GOVITECAN-HZIY
     Indication: Product used for unknown indication
     Dosage: UNK, AFTER D8 OF CYCLE 1,
     Route: 065

REACTIONS (4)
  - Pancytopenia [Recovered/Resolved]
  - Conjunctivitis viral [Unknown]
  - Madarosis [Unknown]
  - Alopecia [Unknown]
